FAERS Safety Report 6552139-2 (Version None)
Quarter: 2010Q1

REPORT INFORMATION
  Report Type: 
  Country: None (occurrence: None)
  Receive Date: 20100120
  Receipt Date: 20100106
  Transmission Date: 20100710
  Serious: Yes (Hospitalization)
  Sender: FDA-Public Use
  Company Number: FABR-1001049

PATIENT
  Age: 39 Year
  Sex: Female
  Weight: 89.3 kg

DRUGS (20)
  1. FABRAZYME [Suspect]
     Indication: FABRY'S DISEASE
     Dosage: 90 MG, Q3W, INTRAVENOUS
     Route: 042
     Dates: start: 20060210
  2. IBUPROFEN [Concomitant]
  3. BENADRYL [Concomitant]
  4. TYLENOL [Concomitant]
  5. PHENERGAN HCL [Concomitant]
  6. SODIUM CHLORIDE [Concomitant]
  7. IBUPROFEN [Concomitant]
  8. LAMICTAL [Concomitant]
  9. LISINOPRIL [Concomitant]
  10. NORVASC [Concomitant]
  11. CYCLOBENZAPRINE [Concomitant]
  12. PRILOSEC [Concomitant]
  13. DITROPAN [Concomitant]
  14. NEURONTIN [Concomitant]
  15. ESKALITH [Concomitant]
  16. AMITRIPTYLINE HYDROCHLORIDE [Concomitant]
  17. ZOLPIDEM [Concomitant]
  18. HYDROCODONE (HYDROCODONE) [Concomitant]
  19. VERSED [Concomitant]
  20. FENTANYL-100 [Concomitant]

REACTIONS (5)
  - DEVICE RELATED INFECTION [None]
  - INFUSION RELATED REACTION [None]
  - RENAL FAILURE ACUTE [None]
  - STAPHYLOCOCCAL BACTERAEMIA [None]
  - TUBULOINTERSTITIAL NEPHRITIS [None]
